FAERS Safety Report 11959501 (Version 1)
Quarter: 2016Q1

REPORT INFORMATION
  Report Type: Spontaneous
  Country: GB (occurrence: GB)
  Receive Date: 20160126
  Receipt Date: 20160126
  Transmission Date: 20160526
  Serious: Yes (Other)
  Sender: FDA-Public Use
  Company Number: GB-009507513-1601GBR008501

PATIENT
  Age: 54 Year
  Sex: Female
  Weight: 56 kg

DRUGS (6)
  1. THIAMINE. [Concomitant]
     Active Substance: THIAMINE
     Dosage: 1 DF;QD
     Dates: start: 20151123
  2. MIRTAZAPINE. [Suspect]
     Active Substance: MIRTAZAPINE
     Dates: start: 20160108
  3. CODEINE PHOSPHATE [Concomitant]
     Active Substance: CODEINE PHOSPHATE
     Dosage: 1 DF; QID
     Dates: start: 20151104, end: 20151111
  4. MOMETASONE FUROATE. [Concomitant]
     Active Substance: MOMETASONE FUROATE
     Dosage: 2 SPRAYS BILATERALLY DAILY
     Dates: start: 20151104, end: 20160113
  5. FULTIUM D3 [Concomitant]
     Dosage: MAINTENANCE OVER
     Dates: start: 20150929, end: 20151217
  6. ACETAMINOPHEN. [Concomitant]
     Active Substance: ACETAMINOPHEN
     Dosage: TAKE 1 OR 2 4 TIMES/DAY
     Dates: start: 20151123, end: 20151205

REACTIONS (4)
  - Asthenia [Unknown]
  - Dyspnoea [Unknown]
  - Pharyngeal oedema [Recovered/Resolved]
  - Dizziness [Unknown]

NARRATIVE: CASE EVENT DATE: 20160109
